FAERS Safety Report 10327645 (Version 1)
Quarter: 2014Q3

REPORT INFORMATION
  Report Type: Spontaneous
  Country: US (occurrence: US)
  Receive Date: 20140721
  Receipt Date: 20140721
  Transmission Date: 20150326
  Serious: No
  Sender: FDA-Public Use
  Company Number: US-BIOGENIDEC-2014BI069219

PATIENT
  Sex: Female

DRUGS (2)
  1. AVONEX [Suspect]
     Active Substance: INTERFERON BETA-1A
     Indication: MULTIPLE SCLEROSIS
     Route: 030
     Dates: start: 20040506
  2. AVONEX [Suspect]
     Active Substance: INTERFERON BETA-1A
     Indication: MULTIPLE SCLEROSIS
     Route: 030
     Dates: start: 201312

REACTIONS (7)
  - Lower extremity mass [Recovered/Resolved]
  - Adverse event [Unknown]
  - Vascular rupture [Recovered/Resolved]
  - Drug administered at inappropriate site [Unknown]
  - Asthenia [Recovered/Resolved]
  - Muscle tightness [Unknown]
  - Anxiety [Unknown]
